FAERS Safety Report 7897301-1 (Version None)
Quarter: 2011Q4

REPORT INFORMATION
  Report Type: 
  Country: None (occurrence: None)
  Receive Date: 20111107
  Receipt Date: 20111031
  Transmission Date: 20120403
  Serious: Yes (Death, Other)
  Sender: FDA-Public Use
  Company Number: PHHY2011JP78653

PATIENT
  Age: 91 Year
  Sex: Female

DRUGS (10)
  1. UNASYN [Concomitant]
     Indication: PNEUMONIA ASPIRATION
     Dosage: 6 G, UNK
     Dates: start: 20110713, end: 20110808
  2. NEOPYRIN [Concomitant]
     Dosage: 1500 ML, UNK
     Dates: start: 20110805, end: 20110825
  3. EXELON [Suspect]
     Dosage: 9 MG, DAILY
     Route: 062
     Dates: start: 20110817
  4. BISOLVON [Concomitant]
     Indication: PNEUMONIA ASPIRATION
     Dosage: 8 MG, UNK
     Route: 042
     Dates: start: 20110715, end: 20110830
  5. SODIUM CHLORIDE [Concomitant]
     Indication: HYPONATRAEMIA
     Dosage: 5 G, UNK
     Route: 042
  6. EXELON [Suspect]
     Indication: DEMENTIA
     Dosage: 4.5 MG, DAILY
     Route: 062
     Dates: start: 20110720, end: 20110816
  7. GASMOTIN [Concomitant]
     Indication: PROPHYLAXIS
     Dosage: 2 MG, UNK
     Route: 048
     Dates: start: 20110711, end: 20110802
  8. AMIGRAEN [Concomitant]
     Indication: NUTRITIONAL SUPPORT
     Dosage: 500 ML, UNK
     Dates: start: 20110826, end: 20110830
  9. TPN ELECTROLYTES IN PLASTIC CONTAINER [Concomitant]
     Indication: NUTRITIONAL SUPPORT
     Dosage: 1000 ML, UNK
     Dates: start: 20110711, end: 20110804
  10. NEOPYRIN [Concomitant]
     Indication: NUTRITIONAL SUPPORT
     Dosage: 1000 ML, UNK

REACTIONS (9)
  - PYREXIA [None]
  - BLOOD SODIUM DECREASED [None]
  - NEUTROPHIL COUNT INCREASED [None]
  - BLOOD GLUCOSE INCREASED [None]
  - WHITE BLOOD CELL COUNT INCREASED [None]
  - LYMPHOCYTE COUNT DECREASED [None]
  - PNEUMONIA ASPIRATION [None]
  - MARASMUS [None]
  - RESPIRATORY ARREST [None]
